FAERS Safety Report 14794712 (Version 1)
Quarter: 2018Q2

REPORT INFORMATION
  Report Type: Report from Study
  Country: GB (occurrence: GB)
  Receive Date: 20180423
  Receipt Date: 20180423
  Transmission Date: 20180711
  Serious: Yes (Other)
  Sender: FDA-Public Use
  Company Number: GB-JNJFOC-20180304462

PATIENT
  Sex: Female

DRUGS (1)
  1. STELARA [Suspect]
     Active Substance: USTEKINUMAB
     Indication: PSORIATIC ARTHROPATHY
     Dosage: 45 MG, FOR WEEK 0, THEN WEEK 4 AND THEN EVERY 12 WEEKS
     Route: 058
     Dates: start: 20180228

REACTIONS (14)
  - Haematochezia [Unknown]
  - Tooth repair [Unknown]
  - Feeling hot [Unknown]
  - Dyspnoea exertional [Unknown]
  - Blood pressure increased [Unknown]
  - Somnolence [Unknown]
  - Psoriatic arthropathy [Unknown]
  - Anxiety [Unknown]
  - Injection site pain [Unknown]
  - Asthenia [Unknown]
  - Dizziness [Unknown]
  - Application site erythema [Unknown]
  - Balance disorder [Unknown]
  - Diarrhoea [Unknown]

NARRATIVE: CASE EVENT DATE: 2018
